FAERS Safety Report 10813628 (Version 1)
Quarter: 2015Q1

REPORT INFORMATION
  Report Type: Spontaneous
  Country: US (occurrence: US)
  Receive Date: 20150218
  Receipt Date: 20150218
  Transmission Date: 20150721
  Serious: Yes (Other)
  Sender: FDA-Public Use
  Company Number: US-SA-2015SA020193

PATIENT
  Age: 66 Year
  Sex: Male

DRUGS (1)
  1. FABRAZYME [Suspect]
     Active Substance: AGALSIDASE BETA
     Route: 042
     Dates: start: 20110419

REACTIONS (2)
  - Deafness [Unknown]
  - Hearing impaired [Unknown]

NARRATIVE: CASE EVENT DATE: 20150209
